FAERS Safety Report 24662736 (Version 1)
Quarter: 2024Q4

REPORT INFORMATION
  Report Type: Spontaneous
  Country: GB (occurrence: GB)
  Receive Date: 20241126
  Receipt Date: 20241126
  Transmission Date: 20250115
  Serious: Yes (Disabling, Other)
  Sender: NOVO NORDISK
  Company Number: None

PATIENT
  Age: 46 Year
  Sex: Female
  Weight: 120 kg

DRUGS (2)
  1. RYBELSUS [Suspect]
     Active Substance: SEMAGLUTIDE
     Indication: Diabetes mellitus
     Dosage: 3 MG, QD (MORNING)
     Dates: start: 20241112, end: 20241115
  2. PREDNISONE [Concomitant]
     Active Substance: PREDNISONE
     Indication: Colitis ulcerative
     Dosage: UNK
     Dates: start: 20230301

REACTIONS (4)
  - Familial hemiplegic migraine [Recovering/Resolving]
  - Paralysis [Unknown]
  - Headache [Unknown]
  - Blindness [Unknown]

NARRATIVE: CASE EVENT DATE: 20241114
